FAERS Safety Report 7109729-8 (Version None)
Quarter: 2010Q4

REPORT INFORMATION
  Report Type: 
  Country: None (occurrence: None)
  Receive Date: 20101116
  Receipt Date: 20101116
  Transmission Date: 20110411
  Serious: Yes (Life-Threatening, Other)
  Sender: FDA-Public Use
  Company Number: None

PATIENT
  Age: 28 Year
  Sex: Female
  Weight: 77.1115 kg

DRUGS (4)
  1. CREON [Suspect]
     Indication: CYSTIC FIBROSIS
     Dosage: HAS NOT ADJUSTED TO CREON 24 AFTER SEVERAL MONTHS
  2. CREON [Suspect]
     Dosage: 7-9 CAPSULES OF CREON 20 EVERY MEAL OR SNACK  ORAL  (HAS USED 20+ YEARS)
     Route: 048
  3. INHALED ANTIBIOTICS [Concomitant]
  4. RESPIRATORY MEDICATIONS [Concomitant]

REACTIONS (3)
  - CONSTIPATION [None]
  - DIARRHOEA [None]
  - WEIGHT DECREASED [None]
